FAERS Safety Report 18527129 (Version 1)
Quarter: 2020Q4

REPORT INFORMATION
  Report Type: Spontaneous
  Country: US (occurrence: US)
  Receive Date: 20201119
  Receipt Date: 20201119
  Transmission Date: 20210114
  Serious: Yes (Hospitalization)
  Sender: FDA-Public Use
  Company Number: None

PATIENT
  Sex: Female

DRUGS (6)
  1. BOTOX [Suspect]
     Active Substance: ONABOTULINUMTOXINA
     Indication: HEMIPLEGIA
     Dosage: ?          OTHER FREQUENCY:Q90DAYS;?
     Route: 030
     Dates: start: 20180426
  2. IBUPROFEN. [Concomitant]
     Active Substance: IBUPROFEN
  3. METRONIDAZOLE. [Concomitant]
     Active Substance: METRONIDAZOLE
  4. LEVOFLOXACIN. [Concomitant]
     Active Substance: LEVOFLOXACIN
  5. CULTURELLE [Concomitant]
     Active Substance: LACTOBACILLUS RHAMNOSUS
  6. GILENYA [Concomitant]
     Active Substance: FINGOLIMOD HYDROCHLORIDE

REACTIONS (2)
  - Diverticulitis [None]
  - Urinary tract infection [None]
